FAERS Safety Report 9212972 (Version 1)
Quarter: 2013Q1

REPORT INFORMATION
  Report Type: Spontaneous
  Country: US (occurrence: US)
  Receive Date: 20120820
  Receipt Date: 20120820
  Transmission Date: 20140127
  Serious: No
  Sender: FDA-Public Use
  Company Number: 1000031544

PATIENT
  Age: 76 Year
  Sex: Female

DRUGS (4)
  1. VIIBRYD (VILAZODONE)(10 MILLIGRAM, TABLETS) [Suspect]
     Indication: DEPRESSION
     Route: 048
     Dates: start: 201204, end: 2012
  2. LEVOTHYROXINE (LEVOTHYROXINE SODIUM)(LEVOTHYROXINE SODIUM) [Concomitant]
  3. LISINOPRIL (LISINOPRIL)(LISINOPRIL) [Concomitant]
  4. ZOLPIDEM (ZOLPIDEM)(ZOLPIDEM) [Concomitant]

REACTIONS (3)
  - Rash erythematous [None]
  - Pruritus [None]
  - Urticaria [None]
